FAERS Safety Report 4368370-0 (Version None)
Quarter: 2004Q2

REPORT INFORMATION
  Report Type: 
  Country: None (occurrence: None)
  Receive Date: 20040528
  Receipt Date: 20040517
  Transmission Date: 20050107
  Serious: Yes (Hospitalization)
  Sender: FDA-Public Use
  Company Number: FI-AMGEN-98090038

PATIENT
  Age: 51 Year
  Sex: Male

DRUGS (1)
  1. ETANERCEPT [Suspect]
     Indication: RHEUMATOID ARTHRITIS
     Dosage: 25 MG , BIW, SC
     Route: 058
     Dates: start: 19980709, end: 19980928

REACTIONS (1)
  - RHEUMATOID ARTHRITIS [None]
